FAERS Safety Report 5801135-9 (Version None)
Quarter: 2008Q3

REPORT INFORMATION
  Report Type: 
  Country: None (occurrence: None)
  Receive Date: 20080707
  Receipt Date: 20080626
  Transmission Date: 20090109
  Serious: Yes (Other)
  Sender: FDA-Public Use
  Company Number: PHHY2008GB12632

PATIENT
  Sex: Male

DRUGS (1)
  1. LIORESAL [Suspect]
     Dosage: 20 MG DAILY

REACTIONS (2)
  - DYSPHAGIA [None]
  - GASTROINTESTINAL HAEMORRHAGE [None]
